FAERS Safety Report 8548428-2 (Version None)
Quarter: 2012Q3

REPORT INFORMATION
  Report Type: 
  Country: None (occurrence: None)
  Receive Date: 20120730
  Receipt Date: 20120723
  Transmission Date: 20120928
  Serious: Yes (Other)
  Sender: FDA-Public Use
  Company Number: US-009507513-1207USA009852

PATIENT

DRUGS (4)
  1. CLOMIPRAMINE HYDROCHLORIDE [Suspect]
  2. ATENOLOL [Suspect]
  3. ZOCOR [Suspect]
     Route: 048
  4. PRILOSEC [Suspect]
     Route: 048

REACTIONS (6)
  - MUSCULAR WEAKNESS [None]
  - NAUSEA [None]
  - CONSTIPATION [None]
  - ABDOMINAL PAIN [None]
  - DIZZINESS [None]
  - DYSPEPSIA [None]
